FAERS Safety Report 6931167-9 (Version None)
Quarter: 2010Q3

REPORT INFORMATION
  Report Type: 
  Country: None (occurrence: None)
  Receive Date: 20100813
  Receipt Date: 20100729
  Transmission Date: 20110219
  Serious: Yes (Hospitalization, Other)
  Sender: FDA-Public Use
  Company Number: 012736

PATIENT
  Sex: Female
  Weight: 88.905 kg

DRUGS (7)
  1. LACOSAMIDE [Suspect]
     Indication: EPILEPSY
     Dosage: 150 MG BID, ORAL
     Route: 048
     Dates: start: 20090917
  2. KEPPRA [Concomitant]
  3. OMEPRAZOLE [Concomitant]
  4. FOLIC ACID [Concomitant]
  5. CELEXA [Concomitant]
  6. LAMICTAL [Concomitant]
  7. DICLOFENAC [Concomitant]

REACTIONS (4)
  - HEMIPARESIS [None]
  - HYPOTENSION [None]
  - IRON DEFICIENCY ANAEMIA [None]
  - STATUS EPILEPTICUS [None]
